FAERS Safety Report 5054898-7 (Version None)
Quarter: 2006Q3

REPORT INFORMATION
  Report Type: 
  Country: None (occurrence: None)
  Receive Date: 20060717
  Receipt Date: 20060706
  Transmission Date: 20061208
  Serious: Yes (Other)
  Sender: FDA-Public Use
  Company Number: 2006084797

PATIENT
  Sex: Male

DRUGS (1)
  1. XANAX [Suspect]
     Indication: MENTAL DISORDER
     Dosage: 0.25 MG (0.25 MG, 1 IN 1 D), ORAL
     Route: 048
     Dates: start: 20060527, end: 20060704

REACTIONS (8)
  - ASTHENIA [None]
  - CHILLS [None]
  - INSOMNIA [None]
  - MEMORY IMPAIRMENT [None]
  - MOOD SWINGS [None]
  - NAUSEA [None]
  - PENIS DISORDER [None]
  - PSYCHOTIC DISORDER [None]
